FAERS Safety Report 7637421-X (Version None)
Quarter: 2011Q3

REPORT INFORMATION
  Report Type: 
  Country: None (occurrence: None)
  Receive Date: 20110726
  Receipt Date: 20110720
  Transmission Date: 20111222
  Serious: Yes (Other)
  Sender: FDA-Public Use
  Company Number: FR-PFIZER INC-2010082891

PATIENT
  Age: 68 Year
  Sex: Female

DRUGS (2)
  1. CELEBREX [Suspect]
     Indication: ARTHRITIS
     Dosage: UNK
     Route: 048
  2. CELEBREX [Suspect]
     Dosage: 200 MG, UNK

REACTIONS (6)
  - DYSPNOEA [None]
  - MALAISE [None]
  - URTICARIA [None]
  - PRURITUS [None]
  - ANGIOEDEMA [None]
  - DYSPHONIA [None]
